FAERS Safety Report 8614133-7 (Version None)
Quarter: 2012Q3

REPORT INFORMATION
  Report Type: 
  Country: None (occurrence: None)
  Receive Date: 20120823
  Receipt Date: 20120813
  Transmission Date: 20120928
  Serious: Yes (Hospitalization, Disabling, Other)
  Sender: FDA-Public Use
  Company Number: US-009507513-1107USA03587

PATIENT

DRUGS (7)
  1. BETAMETHASONE VALERATE [Concomitant]
     Indication: PSORIASIS
     Dosage: 0.1 %, UNK
     Route: 061
     Dates: start: 20030106
  2. FOSAMAX [Suspect]
     Indication: OSTEOPENIA
     Dosage: 70 MG, UNK
     Route: 048
     Dates: start: 20030701, end: 20070314
  3. BONIVA [Suspect]
     Indication: OSTEOPENIA
     Dosage: 150 MG, UNK
     Route: 048
     Dates: start: 20070913, end: 20080925
  4. FOSAMAX [Suspect]
     Dosage: UNK MG, UNK
     Route: 048
     Dates: start: 20050413
  5. FOSAMAX PLUS D [Suspect]
     Dosage: 70 MG, UNK
     Route: 048
     Dates: start: 20061226, end: 20070314
  6. PREMPRO [Concomitant]
  7. RENOVA [Concomitant]
     Indication: SKIN DISORDER
     Dosage: 0.5 %, UNK
     Route: 061
     Dates: start: 20030106

REACTIONS (43)
  - OSTEONECROSIS OF JAW [None]
  - NASAL SEPTUM DEVIATION [None]
  - RHINITIS ALLERGIC [None]
  - REFLUX LARYNGITIS [None]
  - OVARIAN CYST [None]
  - UTERINE MALPOSITION [None]
  - HYPERLIPIDAEMIA [None]
  - SKIN DISORDER [None]
  - ANKLE FRACTURE [None]
  - BONE LOSS [None]
  - GINGIVAL RECESSION [None]
  - COLONIC POLYP [None]
  - URINARY TRACT INFECTION [None]
  - CALCULUS URETERIC [None]
  - UTERINE LEIOMYOMA [None]
  - TOOTH FRACTURE [None]
  - SINUSITIS [None]
  - UPPER-AIRWAY COUGH SYNDROME [None]
  - EXOSTOSIS [None]
  - RENAL CYST [None]
  - VITAMIN D DEFICIENCY [None]
  - UPPER RESPIRATORY TRACT INFECTION [None]
  - BONE DISORDER [None]
  - BREAST MASS [None]
  - SALIVARY GLAND CALCULUS [None]
  - GLOSSODYNIA [None]
  - LOW DENSITY LIPOPROTEIN INCREASED [None]
  - DENTAL PLAQUE [None]
  - ENDOMETRIAL ATROPHY [None]
  - ANXIETY [None]
  - TOOTH DISORDER [None]
  - LIBIDO DECREASED [None]
  - LARYNGEAL OEDEMA [None]
  - VITAMIN D DECREASED [None]
  - GRANULOMATOUS LIVER DISEASE [None]
  - BONE LESION [None]
  - OSTEOSCLEROSIS [None]
  - OVERWEIGHT [None]
  - STRESS [None]
  - POOR PERSONAL HYGIENE [None]
  - HAEMATURIA [None]
  - TONGUE COATED [None]
  - JOINT INJURY [None]
